FAERS Safety Report 5091142-9 (Version None)
Quarter: 2006Q3

REPORT INFORMATION
  Report Type: 
  Country: None (occurrence: None)
  Receive Date: 20060829
  Receipt Date: 20060822
  Transmission Date: 20061208
  Serious: Yes (Other)
  Sender: FDA-Public Use
  Company Number: PHBS2006BR12731

PATIENT
  Age: 27 Year
  Sex: Male
  Weight: 75 kg

DRUGS (1)
  1. FORADIL [Suspect]
     Indication: DECREASED BRONCHIAL SECRETION
     Dosage: 1 DF/DAY

REACTIONS (6)
  - ABNORMAL BEHAVIOUR [None]
  - APATHY [None]
  - DEPRESSED MOOD [None]
  - DEPRESSION [None]
  - RETCHING [None]
  - TREMOR [None]
